FAERS Safety Report 8612913-5 (Version None)
Quarter: 2012Q3

REPORT INFORMATION
  Report Type: 
  Country: None (occurrence: None)
  Receive Date: 20120822
  Receipt Date: 20120217
  Transmission Date: 20120928
  Serious: No
  Sender: FDA-Public Use
  Company Number: US-ALLERGAN-1202333US

PATIENT

DRUGS (1)
  1. SANCTURA XR [Suspect]
     Indication: URINARY TRACT DISORDER
     Dosage: 60 MG, QD
     Route: 048

REACTIONS (2)
  - FALL [None]
  - DRUG INEFFECTIVE [None]
